FAERS Safety Report 18438413 (Version 2)
Quarter: 2023Q2

REPORT INFORMATION
  Report Type: Report from Study
  Country: US (occurrence: None)
  Receive Date: 20201029
  Receipt Date: 20230404
  Transmission Date: 20230722
  Serious: Yes (Hospitalization)
  Sender: FDA-Public Use
  Company Number: US-ROCHE-2699379

PATIENT
  Age: 76 Year
  Sex: Female
  Weight: 42.2 kg

DRUGS (2)
  1. HYDROXYCHLOROQUINE [Suspect]
     Active Substance: HYDROXYCHLOROQUINE
     Indication: Pancreatic carcinoma
     Route: 048
     Dates: start: 20200803, end: 20200808
  2. COBIMETINIB [Suspect]
     Active Substance: COBIMETINIB
     Indication: Pancreatic carcinoma
     Route: 048
     Dates: start: 20220803, end: 20220808

REACTIONS (1)
  - Hypokalaemia [Recovered/Resolved]

NARRATIVE: CASE EVENT DATE: 20200808
